FAERS Safety Report 21611227 (Version 5)
Quarter: 2024Q1

REPORT INFORMATION
  Report Type: Spontaneous
  Country: US (occurrence: US)
  Receive Date: 20221117
  Receipt Date: 20240129
  Transmission Date: 20240410
  Serious: No
  Sender: FDA-Public Use
  Company Number: US-SA-SAC20221115000668

PATIENT
  Age: 76 Year
  Sex: Female

DRUGS (15)
  1. DUPIXENT [Suspect]
     Active Substance: DUPILUMAB
     Indication: Eczema
     Dosage: 300 MG, QOW
     Route: 058
     Dates: start: 20220913
  2. PRAVASTATIN [Concomitant]
     Active Substance: PRAVASTATIN
     Dosage: UNK
  3. OLOPATADINE [Concomitant]
     Active Substance: OLOPATADINE
     Dosage: UNK
  4. VITAMIN C [Concomitant]
     Active Substance: ASCORBIC ACID
     Dosage: UNK
  5. SM FIBRO [Concomitant]
     Dosage: UNK
  6. ALLEGRA [Concomitant]
     Active Substance: FEXOFENADINE HYDROCHLORIDE
     Dosage: UNK
  7. BENADRYL [Concomitant]
     Active Substance: DIPHENHYDRAMINE HYDROCHLORIDE
     Dosage: UNK
  8. ACETAMINOPHEN [Concomitant]
     Active Substance: ACETAMINOPHEN
     Dosage: UNK
  9. ALEVE [Concomitant]
     Active Substance: NAPROXEN SODIUM
     Dosage: UNK
  10. TACROLIMUS [Concomitant]
     Active Substance: TACROLIMUS
  11. FIBER [Concomitant]
     Dosage: UNK
  12. ALLEGRO [FLUTICASONE PROPIONATE] [Concomitant]
     Dosage: UNK
  13. LISINOPRIL [Concomitant]
     Active Substance: LISINOPRIL
     Dosage: UNK
  14. PREDNISONE [Concomitant]
     Active Substance: PREDNISONE
     Dosage: UNK
  15. THERATEARS [Concomitant]
     Active Substance: CARBOXYMETHYLCELLULOSE SODIUM
     Dosage: UNK

REACTIONS (11)
  - Swelling [Recovering/Resolving]
  - Rhinorrhoea [Unknown]
  - Sneezing [Unknown]
  - Blister [Unknown]
  - Eye pain [Unknown]
  - Skin swelling [Unknown]
  - Ocular hyperaemia [Unknown]
  - Pruritus [Unknown]
  - Therapeutic response shortened [Unknown]
  - Eye pruritus [Recovering/Resolving]
  - Drug ineffective [Unknown]

NARRATIVE: CASE EVENT DATE: 20220101
